FAERS Safety Report 8886067 (Version 5)
Quarter: 2013Q3

REPORT INFORMATION
  Report Type: Report from Study
  Country: US (occurrence: US)
  Receive Date: 20121105
  Receipt Date: 20130726
  Transmission Date: 20140515
  Serious: Yes (Other)
  Sender: FDA-Public Use
  Company Number: US-ABBOTT-12P-163-1001575-00

PATIENT
  Age: 50 Year
  Sex: Female

DRUGS (19)
  1. HUMIRA [Suspect]
     Indication: PSORIATIC ARTHROPATHY
     Dates: start: 20120830, end: 201210
  2. GABAPENTIN [Concomitant]
     Indication: FIBROMYALGIA
  3. FUROSEMIDE [Concomitant]
     Indication: FLUID RETENTION
  4. SPIRONOLACTONE [Concomitant]
     Indication: FLUID RETENTION
  5. HYDROCODONE [Concomitant]
     Indication: PAIN
     Dosage: 5/325 MG ONE TO TWO TABS EVERY 6 HOURS (NOT OFTEN)
  6. OXYCODONE [Concomitant]
     Indication: PAIN
     Dosage: 5MG TABS 1-2 EVERY 6 HOURS AS NEEDED
  7. BACLOFEN [Concomitant]
     Indication: MUSCLE RELAXANT THERAPY
  8. TRAMADOL [Concomitant]
     Indication: PAIN
     Dosage: 50 MG EVERY 6 HOURS AS NEEDED
  9. TRAZODONE [Concomitant]
     Indication: INSOMNIA
     Dosage: 100 MG EVERY EVENING AS NEEDED
  10. RESTORIL [Concomitant]
     Indication: INSOMNIA
     Dosage: 30 MG AS NEEDED
  11. TEMAZEPAM [Concomitant]
     Indication: INSOMNIA
     Dosage: AT BEDTIME
  12. EPI PEN [Concomitant]
     Indication: PRODUCT USED FOR UNKNOWN INDICATION
     Dosage: CARRIES THE PEN WITH HER
  13. VITAMIN C [Concomitant]
     Indication: PRODUCT USED FOR UNKNOWN INDICATION
  14. VITAMIN A [Concomitant]
     Indication: PRODUCT USED FOR UNKNOWN INDICATION
  15. VITAMIN D [Concomitant]
     Indication: PRODUCT USED FOR UNKNOWN INDICATION
  16. FERROUS SULFATE [Concomitant]
     Indication: PRODUCT USED FOR UNKNOWN INDICATION
  17. PEPCID [Concomitant]
     Indication: DYSPEPSIA
  18. REGLAN [Concomitant]
     Indication: NAUSEA
     Dosage: 1 TAB EVERY 6 HOURS AS NEEDED
  19. OXYCONTIN [Concomitant]
     Indication: PAIN

REACTIONS (7)
  - Hepatic cirrhosis [Unknown]
  - Breast cancer [Not Recovered/Not Resolved]
  - Insomnia [Unknown]
  - Depression [Unknown]
  - Arthralgia [Unknown]
  - Malaise [Unknown]
  - Bowel movement irregularity [Unknown]
